FAERS Safety Report 6636513-1 (Version None)
Quarter: 2010Q1

REPORT INFORMATION
  Report Type: 
  Country: None (occurrence: None)
  Receive Date: 20100310
  Receipt Date: 20100222
  Transmission Date: 20100710
  Serious: Yes (Hospitalization, Other)
  Sender: FDA-Public Use
  Company Number: AUR-APL-2010-00551

PATIENT
  Age: 10 Week
  Sex: Female

DRUGS (4)
  1. ZIDOVUDINE [Suspect]
     Indication: HIV INFECTION
     Dosage: TRANSPLACENTAL
     Route: 064
  2. ZIDOVUDINE [Suspect]
     Indication: PROPHYLAXIS AGAINST HIV INFECTION
     Dosage: 2MG/KG/DOSE-6HOURLY
  3. LAMIVUDINE [Suspect]
     Indication: HIV INFECTION
     Dosage: TRANSPLACENTAL
     Route: 064
  4. NEVIRAPINE [Suspect]
     Indication: HIV INFECTION
     Dosage: TRANSPLACENTAL
     Route: 064

REACTIONS (8)
  - ALANINE AMINOTRANSFERASE INCREASED [None]
  - ANION GAP INCREASED [None]
  - ASPARTATE AMINOTRANSFERASE INCREASED [None]
  - CAESAREAN SECTION [None]
  - DYSPNOEA [None]
  - MATERNAL DRUGS AFFECTING FOETUS [None]
  - METABOLIC ACIDOSIS [None]
  - RENAL FAILURE ACUTE [None]
